FAERS Safety Report 13842272 (Version 2)
Quarter: 2017Q3

REPORT INFORMATION
  Report Type: Spontaneous
  Country: US (occurrence: US)
  Receive Date: 20170807
  Receipt Date: 20170815
  Transmission Date: 20171127
  Serious: Yes (Death)
  Sender: FDA-Public Use
  Company Number: US-CELGENEUS-USA-20170801263

PATIENT
  Sex: Male

DRUGS (3)
  1. THALOMID [Suspect]
     Active Substance: THALIDOMIDE
     Indication: PLASMA CELL MYELOMA
     Dosage: 50 MILLIGRAM
     Route: 048
     Dates: start: 200307
  2. THALOMID [Suspect]
     Active Substance: THALIDOMIDE
     Dosage: 50-150MG
     Route: 048
     Dates: start: 200308
  3. THALOMID [Suspect]
     Active Substance: THALIDOMIDE
     Dosage: 50 MILLIGRAM
     Route: 048
     Dates: start: 20131210, end: 20170725

REACTIONS (6)
  - Myelodysplastic syndrome [Fatal]
  - Chronic obstructive pulmonary disease [Fatal]
  - Pulmonary hypertension [Fatal]
  - Plasma cell myeloma [Fatal]
  - Anaemia [Fatal]
  - Cardiac failure congestive [Fatal]
